FAERS Safety Report 8580895-0 (Version None)
Quarter: 2012Q3

REPORT INFORMATION
  Report Type: 
  Country: None (occurrence: None)
  Receive Date: 20120809
  Receipt Date: 20120806
  Transmission Date: 20120928
  Serious: Yes (Death, Hospitalization, Other)
  Sender: FDA-Public Use
  Company Number: US-TEVA-340598USA

PATIENT
  Sex: Male

DRUGS (21)
  1. RANITIDINE HYDROCHLORIDE [Concomitant]
     Dosage: 1 Q 0900, Q 1 1700
  2. BREVA [Concomitant]
     Dosage: 103-18 MCG/ACT 1NH BID PRN
  3. CLOZAPINE [Suspect]
     Indication: SCHIZOAFFECTIVE DISORDER
     Dosage: 1 Q 0900, 4 Q 1700
     Route: 048
  4. OMEPRAZOLE [Concomitant]
     Dosage: 20 MILLIGRAM DAILY; AS DIRECTED PRN
  5. FLUTICASONE PROPIONATE/SALMETEROL [Concomitant]
     Dosage: 250-50 MCG 1 PUFF BID
  6. METOPROLOL TARTRATE [Concomitant]
     Dosage: 1 Q 0900
  7. FENOFIBRATE [Concomitant]
     Dosage: 1 Q 1700
  8. LORATADINE [Concomitant]
     Dosage: 1 Q 1700
  9. MULTI-VITAMINS [Concomitant]
     Dosage: 1 Q AM
  10. TRAMADOL HYDROCHLORIDE [Concomitant]
     Dosage: 2 TABS Q 6 HRS PRN PAIN
  11. ALBUTEROL SULFATE AUTOHALER [Concomitant]
     Dosage: 0.5% NEBU AS NEEDED
  12. ATORVASTATIN CALCIUM [Concomitant]
     Dosage: 1 Q 1700
  13. VALPROATE SODIUM [Concomitant]
     Dosage: 1 Q 0900, 3 Q 1700
  14. HALOPERIDOL DECANOATE [Concomitant]
     Dosage: 100 MG/ML SOLN 75 MG IM Q 2 WEEKS
  15. HYDROXYZINE HYDROCHLORIDE [Concomitant]
     Dosage: 1 Q 0900, 1 Q 1500
  16. DOCUSATE SODIUM [Concomitant]
     Dosage: 1 Q 0900, 1 Q 1700
  17. MORNIFLUMATE [Concomitant]
     Dosage: 1 Q 1700
  18. NAPROXEN [Concomitant]
     Dosage: 1 PO BID PRN PAIN
  19. METFORMIN HYDROCHLORIDE [Concomitant]
     Dosage: 1 Q 0900 AND 1 Q 1700
  20. CYCLOBENZAPRINE HCL [Concomitant]
     Dosage: 1 OPO TID PRN
  21. LEVOTHYROXINE SODIUM [Concomitant]
     Dosage: 1 Q 0900

REACTIONS (8)
  - ILEUS [None]
  - NAUSEA [None]
  - SMALL INTESTINAL OBSTRUCTION [None]
  - PNEUMONIA ASPIRATION [None]
  - DIARRHOEA [None]
  - HAEMATEMESIS [None]
  - MYOCARDIAL INFARCTION [None]
  - CARDIAC ARREST [None]
